FAERS Safety Report 7590085-6 (Version None)
Quarter: 2011Q3

REPORT INFORMATION
  Report Type: 
  Country: None (occurrence: None)
  Receive Date: 20110705
  Receipt Date: 20110517
  Transmission Date: 20111222
  Serious: Yes (Life-Threatening, Other)
  Sender: FDA-Public Use
  Company Number: B0721482A

PATIENT
  Age: 61 Year
  Sex: Male

DRUGS (1)
  1. SERETIDE 50MCG/500MCG [Suspect]
     Indication: ASTHMA
     Dosage: 2PUFF PER DAY
     Route: 055
     Dates: start: 20110101, end: 20110603

REACTIONS (4)
  - ACUTE MYOCARDIAL INFARCTION [None]
  - FATIGUE [None]
  - TACHYCARDIA [None]
  - CHEST PAIN [None]
